FAERS Safety Report 12435834 (Version 1)
Quarter: 2016Q2

REPORT INFORMATION
  Report Type: Spontaneous
  Country: US (occurrence: US)
  Receive Date: 20160603
  Receipt Date: 20160603
  Transmission Date: 20160815
  Serious: No
  Sender: FDA-Public Use
  Company Number: US-ASTRAZENECA-2016SE50424

PATIENT
  Sex: Female

DRUGS (1)
  1. METOPROLOL SUCCINATE. [Suspect]
     Active Substance: METOPROLOL SUCCINATE
     Dosage: PAR
     Route: 048

REACTIONS (4)
  - Heart rate increased [Unknown]
  - Product quality issue [Unknown]
  - Somnambulism [Unknown]
  - Adverse event [Unknown]
